FAERS Safety Report 6737789-2 (Version None)
Quarter: 2010Q2

REPORT INFORMATION
  Report Type: 
  Country: None (occurrence: None)
  Receive Date: 20100520
  Receipt Date: 20100506
  Transmission Date: 20101027
  Serious: Yes (Other)
  Sender: FDA-Public Use
  Company Number: 2010US001553

PATIENT
  Sex: Female

DRUGS (1)
  1. VESICARE [Suspect]
     Indication: DRUG USE FOR UNKNOWN INDICATION
     Dosage: 5 MG, D/, ORAL
     Route: 048

REACTIONS (3)
  - NEOPLASM MALIGNANT [None]
  - NOCTURIA [None]
  - URINARY INCONTINENCE [None]
